FAERS Safety Report 13934618 (Version 1)
Quarter: 2017Q3

REPORT INFORMATION
  Report Type: Spontaneous
  Country: US (occurrence: US)
  Receive Date: 20170905
  Receipt Date: 20170905
  Transmission Date: 20171127
  Serious: Yes (Death, Life-Threatening, Other)
  Sender: FDA-Public Use
  Company Number: US-LUPIN PHARMACEUTICALS INC.-2017-05065

PATIENT
  Age: 57 Year
  Sex: Male

DRUGS (2)
  1. PARACETAMOL [Suspect]
     Active Substance: ACETAMINOPHEN
     Indication: PRODUCT USED FOR UNKNOWN INDICATION
     Dosage: UNK
     Route: 065
  2. METFORMIN [Suspect]
     Active Substance: METFORMIN HYDROCHLORIDE
     Indication: PRODUCT USED FOR UNKNOWN INDICATION
     Dosage: UNK
     Route: 065

REACTIONS (13)
  - Depressed level of consciousness [Fatal]
  - Pancreatitis [Fatal]
  - Bradycardia [Fatal]
  - Coma [Fatal]
  - Acute kidney injury [Fatal]
  - Anion gap increased [Fatal]
  - Thrombocytopenia [Fatal]
  - Hypotension [Fatal]
  - Hepatotoxicity [Fatal]
  - Seizure [Fatal]
  - Toxicity to various agents [Fatal]
  - Metabolic acidosis [Fatal]
  - Respiratory depression [Fatal]
